FAERS Safety Report 15524321 (Version 1)
Quarter: 2018Q4

REPORT INFORMATION
  Report Type: Spontaneous
  Country: BY (occurrence: BY)
  Receive Date: 20181018
  Receipt Date: 20181018
  Transmission Date: 20190205
  Serious: Yes (Other)
  Sender: FDA-Public Use
  Company Number: BY-009507513-1810JPN007268

PATIENT
  Age: 49 Year
  Sex: Male
  Weight: 188 kg

DRUGS (13)
  1. PYRIDOXINE HYDROCHLORIDE. [Concomitant]
     Active Substance: PYRIDOXINE HYDROCHLORIDE
     Dosage: 50 MG, UNK
     Dates: start: 20170426
  2. IMIPENEM AND CILASTATIN [Suspect]
     Active Substance: CILASTATIN SODIUM\IMIPENEM
     Indication: TUBERCULOSIS
     Dosage: 2000 (UNKNOWN UNITS), QD
     Route: 042
     Dates: start: 20170426, end: 20180723
  3. IMIPENEM AND CILASTATIN [Suspect]
     Active Substance: CILASTATIN SODIUM\IMIPENEM
     Dosage: 2000 (UNKNOWN UNITS), QD
     Route: 042
     Dates: start: 20180807
  4. DELAMANID [Suspect]
     Active Substance: DELAMANID
     Indication: TUBERCULOSIS
     Dosage: 200 (UNKNOWN UNITS), QD
     Route: 048
     Dates: start: 20170426, end: 20180723
  5. AMOXICILLIN (+) CLAVULANATE POTASSIUM [Suspect]
     Active Substance: AMOXICILLIN\CLAVULANATE POTASSIUM
     Dosage: 2500 (UNKNOWN UNITS), QD
     Route: 048
     Dates: start: 20180807
  6. DELAMANID [Suspect]
     Active Substance: DELAMANID
     Dosage: 200 (UNKNOWN UNITS), QD
     Route: 048
     Dates: start: 20180807
  7. MOXIFLOXACIN. [Suspect]
     Active Substance: MOXIFLOXACIN
     Indication: TUBERCULOSIS
     Dosage: 400 (UNKNOWN UNITS), QD
     Route: 048
     Dates: start: 20170426, end: 20180723
  8. LINEZOLID. [Suspect]
     Active Substance: LINEZOLID
     Indication: TUBERCULOSIS
     Dosage: 600 (UNKNOWN UNITS), QD
     Route: 048
     Dates: start: 20170426, end: 20180723
  9. AMOXICILLIN (+) CLAVULANATE POTASSIUM [Suspect]
     Active Substance: AMOXICILLIN\CLAVULANATE POTASSIUM
     Indication: TUBERCULOSIS
     Dosage: 2500 (UNKNOWN UNITS), QD
     Route: 048
     Dates: start: 20170426, end: 20180723
  10. CLOFAZIMINE [Suspect]
     Active Substance: CLOFAZIMINE
     Dosage: 100 (UNKNOWN UNITS), QD
     Route: 048
     Dates: start: 20180807
  11. LINEZOLID. [Suspect]
     Active Substance: LINEZOLID
     Dosage: 600 (UNKNOWN UNITS), QD
     Route: 048
     Dates: start: 20180807
  12. CLOFAZIMINE [Suspect]
     Active Substance: CLOFAZIMINE
     Indication: TUBERCULOSIS
     Dosage: 100 (UNKNOWN UNITS), QD
     Route: 048
     Dates: start: 20170426, end: 20180723
  13. MOXIFLOXACIN. [Suspect]
     Active Substance: MOXIFLOXACIN
     Dosage: 400 (UNKNOWN UNITS), QD
     Route: 048
     Dates: start: 20180807

REACTIONS (5)
  - Platelet count decreased [Unknown]
  - Hepatitis toxic [Recovered/Resolved]
  - Alcohol poisoning [Unknown]
  - Incorrect product administration duration [Unknown]
  - Red blood cell count decreased [Unknown]

NARRATIVE: CASE EVENT DATE: 20171011
